FAERS Safety Report 8477092-6 (Version None)
Quarter: 2012Q2

REPORT INFORMATION
  Report Type: 
  Country: None (occurrence: None)
  Receive Date: 20120629
  Receipt Date: 20120626
  Transmission Date: 20120825
  Serious: No
  Sender: FDA-Public Use
  Company Number: US-PFIZER INC-2012077596

PATIENT
  Sex: Female
  Weight: 70.2 kg

DRUGS (2)
  1. PANTOPRAZOLE [Suspect]
     Indication: GASTROOESOPHAGEAL REFLUX DISEASE
     Dosage: 40 MG, ONCE A DAY
     Route: 048
     Dates: start: 20110101, end: 20110101
  2. PANTOPRAZOLE [Suspect]
     Dosage: 40 MG, 2X/DAY
     Route: 048

REACTIONS (3)
  - GASTRIC DISORDER [None]
  - DRUG INEFFECTIVE [None]
  - BILIARY TRACT DISORDER [None]
